FAERS Safety Report 7628563-3 (Version None)
Quarter: 2011Q3

REPORT INFORMATION
  Report Type: 
  Country: None (occurrence: None)
  Receive Date: 20110711
  Receipt Date: 20110623
  Transmission Date: 20111222
  Serious: Yes (Other)
  Sender: FDA-Public Use
  Company Number: 2011029022

PATIENT
  Age: 53 Year
  Sex: Female

DRUGS (3)
  1. ZEMAIRA [Suspect]
     Dosage: 80 MG/KG 1X/WEEK INTRAVENOUS (NOT OTHERWISE SPECIFIED))
     Route: 042
  2. ZEMAIRA [Suspect]
     Indication: ALPHA-1 ANTI-TRYPSIN DEFICIENCY
     Dosage: 60 MG/KG 1X/WEEK INTRAVENOUS (NOT OTHERWISE SPECIFIED)),
     Route: 042
     Dates: start: 20110429
  3. ZEMAIRA [Suspect]
     Dosage: 80 MG/KG 1X/WEEK INTRAVENOUS (NOT OTHERWISE SPECIFIED
     Route: 042
     Dates: start: 20110617

REACTIONS (6)
  - PETECHIAE [None]
  - PYREXIA [None]
  - PRODUCT QUALITY ISSUE [None]
  - INFECTIOUS MONONUCLEOSIS [None]
  - RASH [None]
  - EPSTEIN-BARR VIRUS TEST POSITIVE [None]
